FAERS Safety Report 8954758 (Version 3)
Quarter: 2013Q1

REPORT INFORMATION
  Report Type: Spontaneous
  Country: US (occurrence: US)
  Receive Date: 20121207
  Receipt Date: 20130122
  Transmission Date: 20140127
  Serious: Yes (Other)
  Sender: FDA-Public Use
  Company Number: US-ASTRAZENECA-2012SE91035

PATIENT
  Age: 75 Year
  Sex: Female
  Weight: 62.1 kg

DRUGS (8)
  1. SYMBICORT PMDI [Suspect]
     Indication: ASTHMA
     Dosage: 160/4.5 1 PUFF, TWO TIMES A DAY
     Route: 055
     Dates: start: 201002
  2. SYMBICORT PMDI [Suspect]
     Indication: ASTHMA
     Dosage: 160/4.5 UNKNOWN
     Route: 055
  3. SYMBICORT PMDI [Suspect]
     Indication: ASTHMA
     Dosage: 160/4.5 2 PUFF, DAILY
     Route: 055
  4. SYMBICORT PMDI [Suspect]
     Indication: ASTHMA
     Dosage: 160/4.5 4 PUFF, DAILY
     Route: 055
  5. SYMBICORT PMDI [Suspect]
     Indication: ASTHMA
     Dosage: 160/4.5 2 PUFF, DAILY
     Route: 055
  6. ALBUTEROL [Concomitant]
     Indication: ASTHMA
     Dates: start: 201209
  7. FLUTICASONE PROPIONATE [Concomitant]
     Indication: SINUS DISORDER
  8. EYE DROPS [Concomitant]
     Indication: GLAUCOMA
     Dates: start: 201208

REACTIONS (2)
  - Glaucoma [Recovered/Resolved]
  - Off label use [Unknown]
